FAERS Safety Report 6800906-X (Version None)
Quarter: 2010Q2

REPORT INFORMATION
  Report Type: 
  Country: None (occurrence: None)
  Receive Date: 20100629
  Receipt Date: 20100617
  Transmission Date: 20101027
  Serious: Yes (Other)
  Sender: FDA-Public Use
  Company Number: PHEH2009US06606

PATIENT
  Sex: Female
  Weight: 62.585 kg

DRUGS (1)
  1. EXJADE [Suspect]
     Dosage: 1500 MG, QD
     Route: 048
     Dates: start: 20080515

REACTIONS (2)
  - HEPATIC CIRRHOSIS [None]
  - HEPATIC FAILURE [None]
